FAERS Safety Report 7940802-8 (Version None)
Quarter: 2011Q4

REPORT INFORMATION
  Report Type: 
  Country: None (occurrence: None)
  Receive Date: 20111128
  Receipt Date: 20111121
  Transmission Date: 20120403
  Serious: Yes (Other)
  Sender: FDA-Public Use
  Company Number: US-PFIZER INC-2008064462

PATIENT
  Sex: Male

DRUGS (2)
  1. SUTENT [Suspect]
     Indication: RENAL CELL CARCINOMA
     Dosage: 37.5 MG, ON MONDAY, WEDNESDAY, FRIDAY, AND SATURDAY
     Dates: end: 20080508
  2. SUTENT [Suspect]
     Dosage: 25 MG, ON TUESDAY, THURSDAY, AND SUNDAY
     Dates: end: 20080508

REACTIONS (5)
  - SQUAMOUS CELL CARCINOMA [None]
  - NEOPLASM MALIGNANT [None]
  - PROSTATE CANCER [None]
  - DISEASE PROGRESSION [None]
  - RENAL CELL CARCINOMA [None]
